FAERS Safety Report 9256895 (Version 2)
Quarter: 2013Q3

REPORT INFORMATION
  Report Type: Spontaneous
  Country: US (occurrence: US)
  Receive Date: 20130426
  Receipt Date: 20130704
  Transmission Date: 20140515
  Serious: Yes (Hospitalization, Disabling)
  Sender: FDA-Public Use
  Company Number: US-ASTRAZENECA-2013SE27695

PATIENT
  Age: 13621 Day
  Sex: Male
  Weight: 122.9 kg

DRUGS (13)
  1. NEXIUM [Suspect]
     Indication: GASTROOESOPHAGEAL REFLUX DISEASE
     Route: 048
  2. PROTONIX [Concomitant]
     Dosage: ONCE DAILY
  3. PREVACID [Concomitant]
     Dosage: ONCE A DAY
  4. ACIPHEX [Concomitant]
     Dosage: ONCE A DAY
  5. TUMS [Concomitant]
  6. PEPTO BISMOL [Concomitant]
  7. MYLANTA [Concomitant]
  8. LASIX [Concomitant]
  9. PATSIUM [Concomitant]
  10. LATINSIN [Concomitant]
  11. ALLOPURINOL [Concomitant]
  12. ALBUTROL [Concomitant]
  13. ATIVAN [Concomitant]

REACTIONS (9)
  - Systemic lupus erythematosus [Unknown]
  - Chronic obstructive pulmonary disease [Unknown]
  - Ankle fracture [Unknown]
  - Joint dislocation [Unknown]
  - Joint injury [Unknown]
  - Osteoporosis [Unknown]
  - Bone density decreased [Unknown]
  - Multiple fractures [Unknown]
  - Lower limb fracture [Unknown]
